FAERS Safety Report 9869649 (Version 1)
Quarter: 2014Q1

REPORT INFORMATION
  Report Type: Spontaneous
  Country: US (occurrence: US)
  Receive Date: 20140205
  Receipt Date: 20140205
  Transmission Date: 20141002
  Serious: No
  Sender: FDA-Public Use
  Company Number: US-BAYER-2014-018550

PATIENT
  Age: 79 Year
  Sex: Male
  Weight: 81.63 kg

DRUGS (5)
  1. BAYER ASPIRIN REGIMEN ADULT LOW STRENGTH [Concomitant]
     Dosage: 2 DF, QD
  2. CARVEDILOL [Concomitant]
  3. LORAZEPAM [Concomitant]
  4. HYDROCODONE [Concomitant]
  5. ALEVE CAPLET [Suspect]
     Dosage: 1 DF, PRN
     Route: 048
     Dates: start: 20140130

REACTIONS (2)
  - Therapeutic response unexpected [Not Recovered/Not Resolved]
  - Malaise [Recovered/Resolved]
